FAERS Safety Report 7567925-X (Version None)
Quarter: 2011Q2

REPORT INFORMATION
  Report Type: 
  Country: None (occurrence: None)
  Receive Date: 20110623
  Receipt Date: 20110616
  Transmission Date: 20111010
  Serious: Yes (Other)
  Sender: FDA-Public Use
  Company Number: FR-EISAI INC-E3810-04763-SPO-FR

PATIENT
  Age: 36 Year
  Sex: Female

DRUGS (1)
  1. RABEPRAZOLE SODIUM [Suspect]
     Indication: ABDOMINAL PAIN UPPER
     Route: 048
     Dates: start: 20110601, end: 20110601

REACTIONS (3)
  - PYREXIA [None]
  - THROMBOCYTOPENIA [None]
  - ABDOMINAL PAIN [None]
